FAERS Safety Report 10692627 (Version 2)
Quarter: 2015Q1

REPORT INFORMATION
  Report Type: Spontaneous
  Country: TR (occurrence: TR)
  Receive Date: 20150106
  Receipt Date: 20150106
  Transmission Date: 20150720
  Serious: Yes (Death, Other)
  Sender: FDA-Public Use
  Company Number: TR-JNJFOC-20141211362

PATIENT
  Age: 75 Year
  Sex: Female

DRUGS (6)
  1. XARELTO [Suspect]
     Active Substance: RIVAROXABAN
     Indication: ATRIAL FIBRILLATION
     Route: 048
  2. DILTIZEM [Concomitant]
     Route: 065
  3. DIAMICRON [Concomitant]
     Active Substance: GLICLAZIDE
     Route: 065
  4. XARELTO [Suspect]
     Active Substance: RIVAROXABAN
     Indication: CEREBROVASCULAR ACCIDENT PROPHYLAXIS
     Route: 048
  5. CO-DIOVAN [Concomitant]
     Active Substance: HYDROCHLOROTHIAZIDE\VALSARTAN
     Route: 065
  6. SUPRAX [Concomitant]
     Active Substance: CEFIXIME
     Route: 065

REACTIONS (7)
  - Lung infection [Unknown]
  - Cardiac arrest [Fatal]
  - International normalised ratio increased [Unknown]
  - Cerebral haemorrhage [Unknown]
  - Atrial fibrillation [Unknown]
  - Lung neoplasm malignant [Unknown]
  - Pyrexia [Unknown]

NARRATIVE: CASE EVENT DATE: 20141217
